FAERS Safety Report 9490544 (Version 1)
Quarter: 2013Q3

REPORT INFORMATION
  Report Type: Spontaneous
  Country: US (occurrence: None)
  Receive Date: 20130827
  Receipt Date: 20130827
  Transmission Date: 20140515
  Serious: Yes (Disabling)
  Sender: FDA-Public Use
  Company Number: None

PATIENT
  Age: 30 Year
  Sex: Female
  Weight: 90.72 kg

DRUGS (6)
  1. LIPITOR [Suspect]
     Dosage: BY MOUTH
     Route: 048
     Dates: start: 1970
  2. NOVOLOG [Concomitant]
  3. BLOOD PRESSURE PILLS [Concomitant]
  4. THYROID PILLS [Concomitant]
  5. MULTIVITAMIN [Concomitant]
  6. FISH OIL [Concomitant]

REACTIONS (1)
  - Diabetes mellitus [None]
